FAERS Safety Report 19487359 (Version 2)
Quarter: 2021Q3

REPORT INFORMATION
  Report Type: Spontaneous
  Country: DE (occurrence: DE)
  Receive Date: 20210702
  Receipt Date: 20210708
  Transmission Date: 20211014
  Serious: No
  Sender: FDA-Public Use
  Company Number: DE-UCBSA-2021030681

PATIENT
  Sex: Male

DRUGS (2)
  1. LEGANTO [Suspect]
     Active Substance: ROTIGOTINE
     Indication: PRODUCT USED FOR UNKNOWN INDICATION
     Dosage: UNK
     Route: 062
  2. LEGANTO [Suspect]
     Active Substance: ROTIGOTINE
     Dosage: 3MG
     Route: 062

REACTIONS (4)
  - Burning sensation [Unknown]
  - Application site erythema [Unknown]
  - Palpitations [Unknown]
  - Device adhesion issue [Unknown]
